FAERS Safety Report 6370968-5 (Version None)
Quarter: 2009Q3

REPORT INFORMATION
  Report Type: 
  Country: None (occurrence: None)
  Receive Date: 20090923
  Receipt Date: 20070517
  Transmission Date: 20100115
  Serious: Yes (Hospitalization, Disabling)
  Sender: FDA-Public Use
  Company Number: US-ASTRAZENECA-2006UW22578

PATIENT
  Sex: Female
  Weight: 93.4 kg

DRUGS (17)
  1. SEROQUEL [Suspect]
     Indication: DEPRESSION
     Route: 048
  2. SEROQUEL [Suspect]
     Indication: INSOMNIA
     Route: 048
  3. SEROQUEL [Suspect]
     Indication: HALLUCINATION
     Route: 048
  4. SEROQUEL [Suspect]
     Dosage: 25-100 MG
     Route: 048
     Dates: start: 20051123, end: 20060214
  5. SEROQUEL [Suspect]
     Dosage: 25-100 MG
     Route: 048
     Dates: start: 20051123, end: 20060214
  6. SEROQUEL [Suspect]
     Dosage: 25-100 MG
     Route: 048
     Dates: start: 20051123, end: 20060214
  7. LEXAPRO [Concomitant]
  8. PREVACID [Concomitant]
  9. ZOLOFT [Concomitant]
  10. RESTORIL [Concomitant]
  11. ULTRAM [Concomitant]
  12. FLEXERIL [Concomitant]
  13. PHENERGAN [Concomitant]
  14. ZOFRAN [Concomitant]
  15. FLAGYL [Concomitant]
  16. PROTONIX [Concomitant]
  17. REGLAN [Concomitant]

REACTIONS (1)
  - PANCREATITIS [None]
